FAERS Safety Report 15686655 (Version 2)
Quarter: 2018Q4

REPORT INFORMATION
  Report Type: Not Available
  Country: US (occurrence: US)
  Receive Date: 20181204
  Receipt Date: 20181216
  Transmission Date: 20190205
  Serious: No
  Sender: FDA-Public Use
  Company Number: US-NEUROCRINE BIOSCIENCES INC.-2018NBI03402

PATIENT
  Age: 78 Year
  Sex: Male

DRUGS (2)
  1. INGREZZA [Suspect]
     Active Substance: VALBENAZINE
     Route: 048
     Dates: start: 20181029
  2. INGREZZA [Suspect]
     Active Substance: VALBENAZINE
     Indication: TARDIVE DYSKINESIA
     Route: 048
     Dates: start: 20181115, end: 20181121

REACTIONS (4)
  - Hyperhidrosis [Recovered/Resolved]
  - Infection [Recovered/Resolved]
  - Dizziness [Recovered/Resolved]
  - Drug effect decreased [None]

NARRATIVE: CASE EVENT DATE: 2018
